FAERS Safety Report 6295108-2 (Version None)
Quarter: 2009Q3

REPORT INFORMATION
  Report Type: 
  Country: None (occurrence: None)
  Receive Date: 20090803
  Receipt Date: 20090722
  Transmission Date: 20100115
  Serious: Yes (Hospitalization)
  Sender: FDA-Public Use
  Company Number: US-ELI_LILLY_AND_COMPANY-US200907004828

PATIENT
  Sex: Male

DRUGS (2)
  1. GEMZAR [Suspect]
     Indication: PANCREATIC CARCINOMA METASTATIC
     Dates: start: 20090717
  2. TARCEVA [Concomitant]
     Indication: PANCREATIC CARCINOMA METASTATIC

REACTIONS (1)
  - WAIST CIRCUMFERENCE INCREASED [None]
